FAERS Safety Report 13627354 (Version 1)
Quarter: 2017Q2

REPORT INFORMATION
  Report Type: Spontaneous
  Country: JP (occurrence: JP)
  Receive Date: 20170608
  Receipt Date: 20170608
  Transmission Date: 20170830
  Serious: Yes (Other)
  Sender: FDA-Public Use
  Company Number: JP-PFIZER INC-2017244554

PATIENT
  Age: 9 Decade
  Sex: Female

DRUGS (1)
  1. CELECOX [Suspect]
     Active Substance: CELECOXIB
     Indication: OSTEOARTHRITIS
     Dosage: 200 MG, 1X/DAY
     Route: 048

REACTIONS (4)
  - Blood pressure abnormal [Recovering/Resolving]
  - Arrhythmia [Recovered/Resolved]
  - Extrasystoles [Recovered/Resolved]
  - Malaise [Unknown]
